FAERS Safety Report 14825815 (Version 2)
Quarter: 2018Q3

REPORT INFORMATION
  Report Type: Spontaneous
  Country: US (occurrence: US)
  Receive Date: 20180430
  Receipt Date: 20180705
  Transmission Date: 20181010
  Serious: No
  Sender: FDA-Public Use
  Company Number: US-PFIZER INC-2018172451

PATIENT
  Age: 56 Year
  Sex: Female
  Weight: 61 kg

DRUGS (12)
  1. PREMPRO [Suspect]
     Active Substance: ESTROGENS, CONJUGATED\MEDROXYPROGESTERONE ACETATE
     Indication: BODY TEMPERATURE ABNORMAL
     Dosage: [ESTROGENS CONJUGATED 0.3MG]/[MEDROXYPROGESTERONE ACETATE 1.5MG], 1 DF EVERY NIGHT
     Route: 048
     Dates: start: 201802
  2. PREMPRO [Suspect]
     Active Substance: ESTROGENS, CONJUGATED\MEDROXYPROGESTERONE ACETATE
     Indication: HOT FLUSH
  3. DIAZEPAM. [Concomitant]
     Active Substance: DIAZEPAM
     Indication: MUSCLE SPASTICITY
     Dosage: 10 MG TABLET AT NIGHT
     Route: 048
     Dates: start: 2008
  4. TRAZODONE [Concomitant]
     Active Substance: TRAZODONE HYDROCHLORIDE
     Indication: ANXIETY
  5. BACTRIM [Suspect]
     Active Substance: SULFAMETHOXAZOLE\TRIMETHOPRIM
     Indication: URINARY TRACT INFECTION
     Dosage: UNK
  6. VERAPAMIL [Concomitant]
     Active Substance: VERAPAMIL HYDROCHLORIDE
     Indication: MIGRAINE PROPHYLAXIS
     Dosage: 120 MG, 1X/DAY
     Route: 048
     Dates: start: 2016
  7. DIAZEPAM. [Concomitant]
     Active Substance: DIAZEPAM
     Indication: EYE PAIN
  8. TEGRETOL XR [Concomitant]
     Active Substance: CARBAMAZEPINE
     Indication: TRIGEMINAL NEURALGIA
     Dosage: 300MG TABLETS, ONCE TO TWICE DAILY DEPENDING ON HOW BAD
     Dates: start: 2010
  9. GILENYA [Concomitant]
     Active Substance: FINGOLIMOD HYDROCHLORIDE
     Indication: MULTIPLE SCLEROSIS
     Dosage: 0.5 MG CAPSULES, ONCE A DAY
     Route: 048
     Dates: start: 201412
  10. BACLOFEN. [Concomitant]
     Active Substance: BACLOFEN
     Indication: MUSCLE SPASTICITY
     Dosage: 10 MG TABLETS, 3 TIMES A DAY
     Route: 048
     Dates: start: 2004
  11. NORTRIPTYLINE [Concomitant]
     Active Substance: NORTRIPTYLINE
     Indication: NEUROPATHY PERIPHERAL
     Dosage: 10 MG CAPSULES, THREE TIMES A DAY
     Route: 048
     Dates: start: 2008
  12. TRAZODONE [Concomitant]
     Active Substance: TRAZODONE HYDROCHLORIDE
     Indication: SLEEP DISORDER
     Dosage: 50 MG, 1 TABLET AT NIGHT
     Route: 048
     Dates: start: 2012

REACTIONS (2)
  - Burning sensation [Not Recovered/Not Resolved]
  - Visual impairment [Unknown]

NARRATIVE: CASE EVENT DATE: 201802
